FAERS Safety Report 9699297 (Version 1)
Quarter: 2013Q4

REPORT INFORMATION
  Report Type: Spontaneous
  Country: US (occurrence: US)
  Receive Date: 20131120
  Receipt Date: 20131120
  Transmission Date: 20140711
  Serious: No
  Sender: FDA-Public Use
  Company Number: US-GILEAD-2008-0015492

PATIENT
  Sex: Female
  Weight: 89.81 kg

DRUGS (18)
  1. LETAIRIS [Suspect]
     Indication: PULMONARY ARTERIAL HYPERTENSION
     Route: 048
  2. SINGULAIR [Concomitant]
     Route: 048
  3. EVOXAC [Concomitant]
     Route: 048
  4. XALATAN [Concomitant]
     Route: 047
  5. RESTASIS [Concomitant]
     Route: 047
  6. PLAQUENIL [Concomitant]
     Route: 048
  7. BACTROBAN [Concomitant]
     Route: 061
  8. ULTRAM [Concomitant]
     Route: 048
  9. ZITHROMAX [Concomitant]
     Route: 048
  10. NEURONTIN [Concomitant]
     Route: 048
  11. ERYTHROMYCIN [Concomitant]
     Route: 047
  12. FLONASE [Concomitant]
     Route: 045
  13. NEXIUM [Concomitant]
     Route: 048
  14. LEVOTHYROXINE [Concomitant]
     Route: 048
  15. ZANAFLEX [Concomitant]
     Route: 048
  16. ADVAIR [Concomitant]
     Route: 055
  17. IRON [Concomitant]
     Route: 048
  18. XOPENEX [Concomitant]
     Route: 055

REACTIONS (1)
  - Nasal congestion [None]
